FAERS Safety Report 6938371-4 (Version None)
Quarter: 2010Q3

REPORT INFORMATION
  Report Type: 
  Country: None (occurrence: None)
  Receive Date: 20100824
  Receipt Date: 20100817
  Transmission Date: 20110219
  Serious: Yes (Life-Threatening, Hospitalization)
  Sender: FDA-Public Use
  Company Number: JP-PFIZER INC-2010104307

PATIENT
  Age: 81 Year
  Sex: Female
  Weight: 41.7 kg

DRUGS (12)
  1. AZULFIDINE [Suspect]
     Indication: RHEUMATOID ARTHRITIS
     Dosage: 500 MG, 2X/DAY
     Route: 048
     Dates: end: 20100714
  2. RHEUMATREX [Suspect]
     Indication: RHEUMATOID ARTHRITIS
     Dosage: 2 MG, TWICE DAILY, PER WEEK
     Route: 048
  3. RHEUMATREX [Suspect]
     Dosage: 2 MG, ONCE A DAY, PER WEEK
     Route: 048
     Dates: end: 20100714
  4. LOXONIN [Suspect]
     Indication: RHEUMATOID ARTHRITIS
     Dosage: 60 MG, 3X/DAY
     Route: 048
     Dates: end: 20100714
  5. ALOSITOL [Concomitant]
     Indication: HYPERURICAEMIA
     Dosage: 100 MG, 1X/DAY
     Route: 048
  6. AMLODIPINE BESYLATE [Concomitant]
     Indication: HYPERTENSION
     Dosage: 2.5 MG, 1X/DAY
  7. PREDONINE [Concomitant]
     Indication: RHEUMATOID ARTHRITIS
     Dosage: 10 MG, 1X/DAY
     Route: 048
  8. ALFAROL [Concomitant]
     Indication: OSTEOPOROSIS
     Dosage: 1 UG, 1X/DAY
     Route: 048
  9. COTRIM [Concomitant]
     Indication: PNEUMOCYSTIS JIROVECI PNEUMONIA
     Dosage: 1 G, 1X/DAY
     Route: 048
  10. CYTOTEC [Concomitant]
     Indication: PROPHYLAXIS AGAINST GASTROINTESTINAL ULCER
     Dosage: 200 UG, 3X/DAY
     Route: 048
  11. MELBIN [Concomitant]
     Indication: DIABETES MELLITUS
     Dosage: 250 MG, 3X/DAY
     Route: 048
  12. RABEPRAZOLE SODIUM [Concomitant]
     Indication: PROPHYLAXIS AGAINST GASTROINTESTINAL ULCER
     Dosage: 10 MG, 1X/DAY
     Route: 048
     Dates: start: 20100714

REACTIONS (2)
  - PANCYTOPENIA [None]
  - STOMATITIS [None]
